FAERS Safety Report 5831099-3 (Version None)
Quarter: 2008Q3

REPORT INFORMATION
  Report Type: 
  Country: None (occurrence: None)
  Receive Date: 20080801
  Receipt Date: 20080402
  Transmission Date: 20090109
  Serious: No
  Sender: FDA-Public Use
  Company Number: US-BRISTOL-MYERS SQUIBB COMPANY-14135669

PATIENT
  Sex: Female
  Weight: 88 kg

DRUGS (3)
  1. COUMADIN [Suspect]
     Indication: CEREBRAL THROMBOSIS
     Dosage: 1 DOSAGE FORM = 7MG MOST DAYS OCCASIONALLY ALTERNATING WITH 5MG.
     Dates: start: 20080114
  2. LOVENOX [Suspect]
  3. LIPITOR [Concomitant]

REACTIONS (2)
  - ARTHRALGIA [None]
  - INTERNATIONAL NORMALISED RATIO FLUCTUATION [None]
